FAERS Safety Report 7053510-5 (Version None)
Quarter: 2010Q4

REPORT INFORMATION
  Report Type: 
  Country: None (occurrence: None)
  Receive Date: 20101013
  Receipt Date: 20101004
  Transmission Date: 20110411
  Serious: Yes (Other)
  Sender: FDA-Public Use
  Company Number: 2010SP052295

PATIENT
  Age: 30 Year
  Sex: Female

DRUGS (1)
  1. NUVARING [Suspect]
     Indication: CONTRACEPTION
     Dates: start: 20100101

REACTIONS (4)
  - EOSINOPHILIA [None]
  - LEUKOPENIA [None]
  - LYMPHOCYTOSIS [None]
  - MONOCYTOSIS [None]
